FAERS Safety Report 8297622-7 (Version None)
Quarter: 2012Q2

REPORT INFORMATION
  Report Type: 
  Country: None (occurrence: None)
  Receive Date: 20120417
  Receipt Date: 20120405
  Transmission Date: 20120825
  Serious: Yes (Hospitalization)
  Sender: FDA-Public Use
  Company Number: WAES 1203USA03976

PATIENT
  Age: 15 Year
  Sex: Female
  Weight: 45.8133 kg

DRUGS (18)
  1. TURMERIC [Concomitant]
  2. CYCLAZINE [Concomitant]
  3. DEXAMETHASONE [Concomitant]
  4. LANSOPRAZOLE [Concomitant]
  5. SELENIUM (UNSPECIFIED) [Concomitant]
  6. BACLOFEN [Concomitant]
  7. BROCCOLI + CARROT [Concomitant]
  8. RADIANCE [Concomitant]
  9. DECADRON [Suspect]
     Indication: INTRACRANIAL PRESSURE INCREASED
     Dosage: 6;4;3 MG,BID,PO
     Route: 048
     Dates: start: 20120326, end: 20120328
  10. DECADRON [Suspect]
     Indication: INTRACRANIAL PRESSURE INCREASED
     Dosage: 6;4;3 MG,BID,PO
     Route: 048
     Dates: start: 20120328
  11. DECADRON [Suspect]
     Indication: INTRACRANIAL PRESSURE INCREASED
     Dosage: 6;4;3 MG,BID,PO
     Route: 048
     Dates: start: 20120324
  12. BLACK CURRANT + TEA [Concomitant]
  13. LYCOPENE [Concomitant]
  14. PHOTINIA PYRIFOLIA [Concomitant]
  15. MORPHINE SULFATE [Concomitant]
  16. KEPPRA [Concomitant]
  17. MANUKA PYRIFOLIA [Concomitant]
  18. RIDAFOROLIMUS [Concomitant]

REACTIONS (8)
  - FATIGUE [None]
  - MUCOUS MEMBRANE DISORDER [None]
  - ORAL HERPES [None]
  - BACTERIAL INFECTION [None]
  - ASPARTATE AMINOTRANSFERASE INCREASED [None]
  - PARTIAL SEIZURES [None]
  - ALANINE AMINOTRANSFERASE INCREASED [None]
  - DRY SKIN [None]
